FAERS Safety Report 15438970 (Version 2)
Quarter: 2018Q4

REPORT INFORMATION
  Report Type: Spontaneous
  Country: US (occurrence: US)
  Receive Date: 20180928
  Receipt Date: 20181102
  Transmission Date: 20190204
  Serious: Yes (Other)
  Sender: FDA-Public Use
  Company Number: US-PFIZER INC-2018391993

PATIENT
  Age: 41 Year
  Sex: Male

DRUGS (1)
  1. LYRICA [Suspect]
     Active Substance: PREGABALIN
     Dosage: 300 MG, 3X/DAY (EVERY ABOUT 3 TO 4 HOURS, OR AS NEEDED BUT MOST OF THE TIME I TAKE 3 A DAY)

REACTIONS (6)
  - Intentional product misuse [Unknown]
  - Prescribed overdose [Unknown]
  - Irritability [Unknown]
  - Pain [Unknown]
  - Withdrawal syndrome [Unknown]
  - Brain injury [Unknown]
